FAERS Safety Report 12496205 (Version 3)
Quarter: 2016Q3

REPORT INFORMATION
  Report Type: Spontaneous
  Country: US (occurrence: US)
  Receive Date: 20160624
  Receipt Date: 20160727
  Transmission Date: 20161109
  Serious: Yes (Other)
  Sender: FDA-Public Use
  Company Number: US-PFIZER INC-2016309682

PATIENT
  Sex: Female

DRUGS (1)
  1. LYRICA [Suspect]
     Active Substance: PREGABALIN
     Dosage: UNK
     Dates: start: 201602

REACTIONS (7)
  - Meniere^s disease [Unknown]
  - Condition aggravated [Unknown]
  - Tinnitus [Unknown]
  - Weight increased [Unknown]
  - Deafness unilateral [Unknown]
  - Vision blurred [Unknown]
  - Fluid retention [Unknown]
